FAERS Safety Report 13965063 (Version 1)
Quarter: 2017Q3

REPORT INFORMATION
  Report Type: Report from Study
  Country: JP (occurrence: JP)
  Receive Date: 20170913
  Receipt Date: 20170913
  Transmission Date: 20171128
  Serious: Yes (Death, Hospitalization, Other)
  Sender: FDA-Public Use
  Company Number: JP-BRISTOL-MYERS SQUIBB COMPANY-14765747

PATIENT
  Age: 62 Year
  Sex: Male
  Weight: 48.2 kg

DRUGS (3)
  1. DASATINIB [Suspect]
     Active Substance: DASATINIB
     Indication: CHRONIC MYELOID LEUKAEMIA
     Dosage: 11MAY09-UNK (100 X1 MG/D)  27MAY09-09JUN09 (70X2 MG/D)
     Route: 048
     Dates: start: 20090511, end: 20090609
  2. VINCRISTINE SULFATE. [Concomitant]
     Active Substance: VINCRISTINE SULFATE
     Indication: CHRONIC MYELOID LEUKAEMIA
     Dosage: INJECTION
     Route: 042
     Dates: start: 20090526
  3. PREDONINE [Concomitant]
     Active Substance: PREDNISOLONE
     Indication: PRODUCT USED FOR UNKNOWN INDICATION
     Dosage: TABS  BEFORE SPRYCEL START-15MAY09:30MG  16MAY09-ONG:15MG
     Route: 048

REACTIONS (7)
  - Disseminated intravascular coagulation [Recovered/Resolved]
  - Agranulocytosis [Unknown]
  - Platelet count decreased [Not Recovered/Not Resolved]
  - Sepsis [Recovered/Resolved]
  - Malignant neoplasm progression [Fatal]
  - Protein C decreased [Recovered/Resolved]
  - Anaemia [Recovered/Resolved]

NARRATIVE: CASE EVENT DATE: 20090514
